FAERS Safety Report 12850699 (Version 2)
Quarter: 2016Q4

REPORT INFORMATION
  Report Type: Spontaneous
  Country: US (occurrence: US)
  Receive Date: 20161014
  Receipt Date: 20161102
  Transmission Date: 20170207
  Serious: Yes (Other)
  Sender: FDA-Public Use
  Company Number: US-ABBVIE-16P-163-1752790-00

PATIENT
  Sex: Female

DRUGS (2)
  1. LUPRON DEPOT [Suspect]
     Active Substance: LEUPROLIDE ACETATE
     Indication: ENDOMETRIOSIS
     Route: 050
  2. LUPRON DEPOT [Suspect]
     Active Substance: LEUPROLIDE ACETATE
     Indication: POLYCYSTIC OVARIES

REACTIONS (6)
  - Scoliosis [Unknown]
  - Metabolic disorder [Unknown]
  - Surgery [Unknown]
  - Arthropathy [Unknown]
  - Discomfort [Unknown]
  - Emotional distress [Unknown]
